FAERS Safety Report 4360210-9 (Version None)
Quarter: 2004Q2

REPORT INFORMATION
  Report Type: 
  Country: None (occurrence: None)
  Receive Date: 20040513
  Receipt Date: 20040429
  Transmission Date: 20050107
  Serious: No
  Sender: FDA-Public Use
  Company Number: 04P-163-0259490-00

PATIENT
  Age: 24 Year
  Sex: Female

DRUGS (2)
  1. WARFARIN (WARFARIN SODIUIM) (WARFARIN SODIUIM) [Suspect]
     Indication: PULMONARY EMBOLISM
     Dosage: 10 MG, 1 IN 1 D
  2. HEPARIN [Concomitant]

REACTIONS (4)
  - NECROSIS [None]
  - PAIN [None]
  - PURPURA [None]
  - TRANSPLANT [None]
